FAERS Safety Report 7012604-0 (Version None)
Quarter: 2010Q3

REPORT INFORMATION
  Report Type: 
  Country: None (occurrence: None)
  Receive Date: 20100924
  Receipt Date: 20100916
  Transmission Date: 20110219
  Serious: Yes (Hospitalization)
  Sender: FDA-Public Use
  Company Number: FR-SANOFI-AVENTIS-2010SA055511

PATIENT
  Age: 76 Year
  Sex: Female

DRUGS (3)
  1. TAXOTERE [Suspect]
     Indication: BREAST CANCER
     Route: 042
     Dates: start: 20100101, end: 20100617
  2. AVASTIN [Suspect]
     Indication: BREAST CANCER
     Route: 042
     Dates: start: 20100101, end: 20100617
  3. PRACTAZIN [Suspect]
     Dates: start: 20100501, end: 20100704

REACTIONS (6)
  - ANAEMIA [None]
  - ASTHENIA [None]
  - DEHYDRATION [None]
  - HYPOKALAEMIA [None]
  - MALAISE [None]
  - RENAL FAILURE [None]
